FAERS Safety Report 22251114 (Version 1)
Quarter: 2023Q2

REPORT INFORMATION
  Report Type: Spontaneous
  Country: CZ (occurrence: CZ)
  Receive Date: 20230425
  Receipt Date: 20230425
  Transmission Date: 20230721
  Serious: Yes (Life-Threatening, Other)
  Sender: FDA-Public Use
  Company Number: None

PATIENT
  Age: 68 Year
  Sex: Male
  Weight: 82 kg

DRUGS (6)
  1. KEYTRUDA [Suspect]
     Active Substance: PEMBROLIZUMAB
     Indication: Squamous cell carcinoma of skin
     Dosage: APPLIED 16 CYCLES IN 3 WEEK INTERVALS, INTERRUPTED FOR TOXICITY
     Route: 042
     Dates: start: 20220406, end: 20230405
  2. ANDROFIN [Concomitant]
     Dosage: PRODUCT DISCONTINUED IN CASE OF GYNECOMASTIA, REINTRODUCTION IS UNKNOWN
  3. TAMUROX [Concomitant]
     Dosage: 1-0-0
  4. LEVOTHYROXINE SODIUM [Concomitant]
     Active Substance: LEVOTHYROXINE SODIUM
  5. PERINDOPRIL ARGININE [Concomitant]
     Active Substance: PERINDOPRIL ARGININE
  6. ACETAMINOPHEN\TRAMADOL HYDROCHLORIDE [Concomitant]
     Active Substance: ACETAMINOPHEN\TRAMADOL HYDROCHLORIDE
     Indication: Back pain
     Dosage: AS NEEDED ONCE A MONTH 1/2 TBL

REACTIONS (6)
  - Autoimmune thyroiditis [Unknown]
  - Colitis [Recovered/Resolved]
  - Blood thyroid stimulating hormone increased [Unknown]
  - Gynaecomastia [Unknown]
  - Dermatitis [Unknown]
  - Hypogonadism male [Unknown]

NARRATIVE: CASE EVENT DATE: 20220101
